FAERS Safety Report 7633753-X (Version None)
Quarter: 2011Q3

REPORT INFORMATION
  Report Type: 
  Country: None (occurrence: None)
  Receive Date: 20110725
  Receipt Date: 20110720
  Transmission Date: 20111222
  Serious: Yes (Death)
  Sender: FDA-Public Use
  Company Number: TW-CELGENEUS-153-C5013-11063394

PATIENT
  Sex: Female
  Weight: 43 kg

DRUGS (11)
  1. LASIX [Concomitant]
     Indication: PREMEDICATION
     Route: 050
     Dates: start: 20110315, end: 20110621
  2. FILGRASTIM [Concomitant]
     Indication: PANCYTOPENIA
     Dosage: 250 MICROGRAM
     Route: 058
     Dates: start: 20110524, end: 20110526
  3. ALLERMIN [Concomitant]
     Indication: PREMEDICATION
     Route: 050
     Dates: start: 20110315, end: 20110621
  4. FILGRASTIM [Concomitant]
     Dosage: 250 MICROGRAM
     Route: 058
     Dates: start: 20110531, end: 20110602
  5. CLONAZEPAM [Concomitant]
     Indication: INSOMNIA
     Dosage: .5 MILLIGRAM
     Route: 048
     Dates: start: 20110301
  6. METHASONE [Concomitant]
     Indication: PREMEDICATION
     Route: 050
     Dates: start: 20110607, end: 20110607
  7. DECADRON [Concomitant]
     Indication: PREMEDICATION
     Route: 050
     Dates: start: 20110315, end: 20110621
  8. FILGRASTIM [Concomitant]
     Dosage: 300 MICROGRAM
     Route: 058
     Dates: start: 20110621, end: 20110621
  9. REVLIMID [Suspect]
     Indication: MULTIPLE MYELOMA
     Dosage: 5 MILLIGRAM
     Route: 048
     Dates: start: 20110607, end: 20110624
  10. ULSAFE [Concomitant]
     Indication: GASTRIC ULCER
     Dosage: 150 MILLIGRAM
     Route: 048
     Dates: start: 20110301, end: 20110530
  11. PERIACTIN [Concomitant]
     Indication: ECZEMA
     Dosage: 36 MILLIGRAM
     Route: 048
     Dates: start: 20110621

REACTIONS (1)
  - CARDIOPULMONARY FAILURE [None]
